FAERS Safety Report 5355448-8 (Version None)
Quarter: 2007Q2

REPORT INFORMATION
  Report Type: 
  Country: None (occurrence: None)
  Receive Date: 20070611
  Receipt Date: 20070611
  Transmission Date: 20071010
  Serious: Yes (Other)
  Sender: FDA-Public Use
  Company Number: None

PATIENT
  Age: 38 Year
  Sex: Male
  Weight: 74.2085 kg

DRUGS (2)
  1. LEVAQUIN [Suspect]
     Dosage: 500 MG Q DAY PO
     Route: 048
     Dates: start: 20070517, end: 20070524
  2. TRIMETHOBENZAMIDE SUPPOSITORIES [Concomitant]

REACTIONS (2)
  - DERMATITIS BULLOUS [None]
  - PHOTOSENSITIVITY REACTION [None]
